FAERS Safety Report 8454738-X (Version None)
Quarter: 2012Q2

REPORT INFORMATION
  Report Type: 
  Country: None (occurrence: None)
  Receive Date: 20120614
  Receipt Date: 20120529
  Transmission Date: 20120825
  Serious: Yes (Other)
  Sender: FDA-Public Use
  Company Number: FK201201537

PATIENT
  Age: 81 Year
  Sex: Female

DRUGS (5)
  1. BENDROFLUMETHIAZIDE (BENDROFLUMETIAZIDE) [Concomitant]
  2. FOLIC ACID [Concomitant]
  3. METHOTREXATE [Suspect]
     Indication: RHEUMATOID ARTHRITIS
     Dosage: 25 MG, ORAL
     Route: 048
     Dates: start: 20120316, end: 20120507
  4. ACETAMINOPHEN W/ CODEINE [Concomitant]
  5. IBUPROFEN [Concomitant]

REACTIONS (3)
  - ALOPECIA [None]
  - NOCTURIA [None]
  - DIZZINESS [None]
